FAERS Safety Report 9798245 (Version 2)
Quarter: 2014Q2

REPORT INFORMATION
  Report Type: Spontaneous
  Country: US (occurrence: US)
  Receive Date: 20140106
  Receipt Date: 20140430
  Transmission Date: 20141212
  Serious: Yes (Other)
  Sender: FDA-Public Use
  Company Number: US-BAYER-2014-001266

PATIENT
  Age: 30 Year
  Sex: Female
  Weight: 178.7 kg

DRUGS (1)
  1. MIRENA [Suspect]
     Indication: CONTRACEPTION
     Dosage: 20 MCG/24HR, CONT
     Route: 015
     Dates: start: 201011, end: 20131231

REACTIONS (7)
  - Menstruation irregular [None]
  - Ectopic pregnancy with contraceptive device [None]
  - Drug ineffective [None]
  - Ruptured ectopic pregnancy [Recovered/Resolved]
  - Peritoneal haemorrhage [Recovered/Resolved]
  - Pain [Recovered/Resolved]
  - Amenorrhoea [None]
